FAERS Safety Report 5890510-2 (Version None)
Quarter: 2008Q3

REPORT INFORMATION
  Report Type: 
  Country: None (occurrence: None)
  Receive Date: 20080922
  Receipt Date: 20080911
  Transmission Date: 20090109
  Serious: Yes (Other)
  Sender: FDA-Public Use
  Company Number: PHEH2008US08185

PATIENT
  Age: 48 Year
  Sex: Female
  Weight: 81.179 kg

DRUGS (8)
  1. VIVELLE-DOT [Suspect]
     Indication: HORMONE REPLACEMENT THERAPY
     Dosage: .05 MG EVERY 2 WEEKS
     Route: 061
     Dates: start: 20080816, end: 20080906
  2. VIVELLE-DOT [Suspect]
     Dosage: 0.1 MG EVERY 2 WEEKS
     Route: 061
     Dates: start: 20080906
  3. PLAQUENIL [Concomitant]
  4. CYMBALTA [Concomitant]
  5. DIAMOX                                  /CAN/ [Concomitant]
  6. MINOCYCLINE HCL [Concomitant]
  7. HERBAL PREPARATION [Concomitant]
  8. ANALGESICS [Concomitant]

REACTIONS (4)
  - CONDITION AGGRAVATED [None]
  - HEADACHE [None]
  - POST PROCEDURAL HAEMORRHAGE [None]
  - VENTRICULAR EXTRASYSTOLES [None]
